FAERS Safety Report 13062741 (Version 1)
Quarter: 2016Q4

REPORT INFORMATION
  Report Type: Report from Study
  Country: US (occurrence: US)
  Receive Date: 20161226
  Receipt Date: 20161226
  Transmission Date: 20170207
  Serious: Yes (Hospitalization, Other)
  Sender: FDA-Public Use
  Company Number: PHEH2016US033168

PATIENT
  Sex: Male

DRUGS (1)
  1. ENTRESTO [Suspect]
     Active Substance: SACUBITRIL\VALSARTAN
     Indication: CARDIAC DISORDER
     Dosage: 50 MG, BID
     Route: 048
     Dates: start: 20160908

REACTIONS (6)
  - Pulmonary thrombosis [Unknown]
  - Product use issue [Unknown]
  - Nephrolithiasis [Unknown]
  - Head injury [Unknown]
  - Dizziness [Unknown]
  - Dyspnoea [Unknown]
